FAERS Safety Report 21092392 (Version 2)
Quarter: 2022Q3

REPORT INFORMATION
  Report Type: Spontaneous
  Country: AR (occurrence: AR)
  Receive Date: 20220718
  Receipt Date: 20220812
  Transmission Date: 20221027
  Serious: Yes (Hospitalization, Other)
  Sender: FDA-Public Use
  Company Number: AR-TOLMAR, INC.-22AR035663

PATIENT
  Age: 78 Year
  Sex: Male
  Weight: 79 kg

DRUGS (9)
  1. ELIGARD [Suspect]
     Active Substance: LEUPROLIDE ACETATE
     Indication: Prostate cancer metastatic
     Dosage: 22.5 MILLIGRAM, Q 3 WEEK
     Dates: start: 20220425
  2. ENZALUTAMIDE [Suspect]
     Active Substance: ENZALUTAMIDE
     Indication: Prostate cancer metastatic
     Dosage: 40 MILLIGRAM, Q 3 WEEK
     Route: 048
     Dates: start: 20220425
  3. ENALAPRIL\HYDROCHLOROTHIAZIDE [Concomitant]
     Active Substance: ENALAPRIL\HYDROCHLOROTHIAZIDE
     Dosage: UNK
     Dates: start: 19991201
  4. ATEL [ATENOLOL] [Concomitant]
     Dosage: UNK
     Dates: start: 19991201
  5. ALPRAZOLAM [Concomitant]
     Active Substance: ALPRAZOLAM
     Dosage: UNK
     Dates: start: 19991201
  6. SINLIP [ROSUVASTATIN CALCIUM] [Concomitant]
  7. TAMSULOSIN [Concomitant]
     Active Substance: TAMSULOSIN
     Dosage: UNK
     Dates: start: 20151201
  8. TRUSOPT [Concomitant]
     Active Substance: DORZOLAMIDE HYDROCHLORIDE
     Dosage: UNK
     Dates: start: 19801201
  9. LOUTEN [Concomitant]
     Dosage: UNK
     Dates: start: 19991201

REACTIONS (2)
  - Neutropenia [Not Recovered/Not Resolved]
  - COVID-19 pneumonia [Unknown]

NARRATIVE: CASE EVENT DATE: 20220527
